APPROVED DRUG PRODUCT: VERAPAMIL HYDROCHLORIDE
Active Ingredient: VERAPAMIL HYDROCHLORIDE
Strength: 120MG
Dosage Form/Route: TABLET;ORAL
Application: A071489 | Product #001
Applicant: SUN PHARMACEUTICAL INDUSTRIES INC
Approved: Jan 13, 1988 | RLD: No | RS: No | Type: DISCN